FAERS Safety Report 4674028-0 (Version None)
Quarter: 2005Q2

REPORT INFORMATION
  Report Type: 
  Country: None (occurrence: None)
  Receive Date: 20050525
  Receipt Date: 20050510
  Transmission Date: 20051028
  Serious: Yes (Hospitalization)
  Sender: FDA-Public Use
  Company Number: 2005074307

PATIENT
  Age: 64 Year
  Sex: Female

DRUGS (7)
  1. SULFASALAZINE [Suspect]
     Indication: RHEUMATOID ARTHRITIS
     Dosage: 2 GRAM (500 MG, 4 IN 1 D), ORAL
     Route: 048
     Dates: start: 20041021, end: 20041122
  2. KETOPROFEN [Suspect]
     Indication: RHEUMATOID ARTHRITIS
     Dosage: 150 MG, ORAL
     Route: 048
     Dates: start: 20041021, end: 20041122
  3. TRAMADOL HCL [Suspect]
     Indication: RHEUMATOID ARTHRITIS
     Dosage: 50 MG, ORAL
     Route: 048
     Dates: start: 20041021, end: 20041122
  4. PANTOPRAZOLE SODIUM [Suspect]
     Indication: ILL-DEFINED DISORDER
     Dosage: 40 MG, ORAL
     Route: 048
     Dates: start: 20041021, end: 20041021
  5. CEFUROXIME AXETIL [Concomitant]
  6. SYMBICORT (BUDESONIDE, FORMOTEROL FUMARATE) [Concomitant]
  7. ACETYLCYSTEINE [Concomitant]

REACTIONS (15)
  - ABDOMINAL PAIN UPPER [None]
  - ALANINE AMINOTRANSFERASE INCREASED [None]
  - ANAEMIA [None]
  - ASPARTATE AMINOTRANSFERASE INCREASED [None]
  - BLOOD ALKALINE PHOSPHATASE INCREASED [None]
  - FATIGUE [None]
  - HEPATIC PAIN [None]
  - JAUNDICE [None]
  - MYALGIA [None]
  - PYREXIA [None]
  - RASH PAPULAR [None]
  - RHINORRHOEA [None]
  - SINUS HEADACHE [None]
  - THROMBOCYTOPENIA [None]
  - VOMITING [None]
